FAERS Safety Report 20227946 (Version 4)
Quarter: 2022Q2

REPORT INFORMATION
  Report Type: Spontaneous
  Country: JP (occurrence: None)
  Receive Date: 20211224
  Receipt Date: 20220419
  Transmission Date: 20220721
  Serious: Yes (Hospitalization)
  Sender: FDA-Public Use
  Company Number: 2021A889873

PATIENT
  Age: 73 Year
  Sex: Female
  Weight: 83 kg

DRUGS (7)
  1. IMFINZI [Suspect]
     Active Substance: DURVALUMAB
     Indication: Non-small cell lung cancer
     Route: 041
     Dates: start: 20211029, end: 20211126
  2. SHAKUYAKUKANZOTO [Suspect]
     Active Substance: HERBALS
     Route: 048
  3. BISOPROLOL [Concomitant]
     Active Substance: BISOPROLOL
     Route: 048
  4. NIFEDIPINE [Concomitant]
     Active Substance: NIFEDIPINE
     Route: 048
  5. DOXAZOSIN [Concomitant]
     Active Substance: DOXAZOSIN MESYLATE
     Route: 048
  6. FUROSEMIDE [Concomitant]
     Active Substance: FUROSEMIDE
     Route: 048
  7. VALSARTAN [Concomitant]
     Active Substance: VALSARTAN
     Route: 048

REACTIONS (3)
  - Radiation pneumonitis [Recovering/Resolving]
  - Folate deficiency [Recovering/Resolving]
  - Hypokalaemia [Recovering/Resolving]

NARRATIVE: CASE EVENT DATE: 20211126
